FAERS Safety Report 12823447 (Version 1)
Quarter: 2016Q4

REPORT INFORMATION
  Report Type: Spontaneous
  Country: GB (occurrence: GB)
  Receive Date: 20161007
  Receipt Date: 20161007
  Transmission Date: 20170207
  Serious: Yes (Other)
  Sender: FDA-Public Use
  Company Number: GB-TEVA-699400ACC

PATIENT
  Age: 32 Year
  Sex: Female
  Weight: 69.85 kg

DRUGS (2)
  1. SAINSBURYS PARACETAMOL [Concomitant]
  2. TRIMETHOPRIM. [Suspect]
     Active Substance: TRIMETHOPRIM
     Indication: INFECTION
     Dosage: 2 DOSAGE FORMS DAILY; FOR WATER INFECTION
     Route: 048
     Dates: start: 20160915, end: 20160917

REACTIONS (1)
  - Cluster headache [Recovered/Resolved]

NARRATIVE: CASE EVENT DATE: 20160915
